FAERS Safety Report 16020594 (Version 2)
Quarter: 2019Q1

REPORT INFORMATION
  Report Type: Spontaneous
  Country: US (occurrence: US)
  Receive Date: 20190301
  Receipt Date: 20190312
  Transmission Date: 20190418
  Serious: Yes (Death)
  Sender: FDA-Public Use
  Company Number: US-ROCHE-2274501

PATIENT
  Age: 48 Year
  Sex: Female
  Weight: 129.39 kg

DRUGS (8)
  1. CELEXA [Concomitant]
     Active Substance: CITALOPRAM HYDROBROMIDE
     Dosage: ONGOING: NO
     Route: 065
     Dates: start: 201409
  2. NUVIGIL [Concomitant]
     Active Substance: ARMODAFINIL
     Dosage: ONGOING:NO
     Route: 065
     Dates: start: 201501
  3. ANTIVERT (MECLIZINE) [Concomitant]
     Dosage: ONGOING:NO
     Route: 065
     Dates: start: 201508
  4. ZANTAC [Concomitant]
     Active Substance: RANITIDINE HYDROCHLORIDE
     Dosage: ONGOING:NO
     Route: 065
     Dates: start: 201710
  5. ZYRTEC [Concomitant]
     Active Substance: CETIRIZINE HYDROCHLORIDE
     Dosage: ONGOING:NO
     Route: 065
     Dates: start: 201710
  6. OCREVUS [Suspect]
     Active Substance: OCRELIZUMAB
     Indication: RELAPSING MULTIPLE SCLEROSIS
     Dosage: ONGOING:NO
     Route: 042
     Dates: start: 20171117
  7. AMPYRA [Concomitant]
     Active Substance: DALFAMPRIDINE
     Dosage: ONGOING:NO
     Route: 065
     Dates: start: 201511
  8. BACLOFEN. [Concomitant]
     Active Substance: BACLOFEN
     Dosage: ONGOING:NO
     Route: 065
     Dates: start: 201406

REACTIONS (1)
  - Post procedural pulmonary embolism [Fatal]

NARRATIVE: CASE EVENT DATE: 20190201
